FAERS Safety Report 5581573-2 (Version None)
Quarter: 2008Q1

REPORT INFORMATION
  Report Type: 
  Country: None (occurrence: None)
  Receive Date: 20080102
  Receipt Date: 20080102
  Transmission Date: 20080703
  Serious: Yes (Other)
  Sender: FDA-Public Use
  Company Number: None

PATIENT
  Age: 59 Year
  Sex: Female
  Weight: 48.5349 kg

DRUGS (1)
  1. OPTICLIK INJECTION INSULINDEVICE SANOFI AVENTIS [Suspect]
     Dosage: 2-4 UNITS OF INSULIN BEFORE EACH MEAL OTHER
     Route: 050

REACTIONS (2)
  - DEVICE FAILURE [None]
  - PHARMACEUTICAL PRODUCT COMPLAINT [None]
